FAERS Safety Report 8687140 (Version 2)
Quarter: 2013Q1

REPORT INFORMATION
  Report Type: Report from Study
  Country: GB (occurrence: GB)
  Receive Date: 20120727
  Receipt Date: 20130109
  Transmission Date: 20140127
  Serious: Yes (Other)
  Sender: FDA-Public Use
  Company Number: PHFR2012GB004190

PATIENT
  Age: 21 Year
  Sex: Female

DRUGS (1)
  1. TOBRAMYCIN [Suspect]
     Indication: CYSTIC FIBROSIS
     Dosage: 112 MG, UNK
     Dates: start: 20120703, end: 20120718

REACTIONS (2)
  - Bronchospasm [Not Recovered/Not Resolved]
  - Wheezing [Not Recovered/Not Resolved]
